FAERS Safety Report 6112938-8 (Version None)
Quarter: 2009Q1

REPORT INFORMATION
  Report Type: 
  Country: None (occurrence: None)
  Receive Date: 20090312
  Receipt Date: 20090227
  Transmission Date: 20090719
  Serious: Yes (Hospitalization)
  Sender: FDA-Public Use
  Company Number: JP-ROCHE-616357

PATIENT
  Sex: Male
  Weight: 63 kg

DRUGS (11)
  1. TAMIFLU [Suspect]
     Indication: INFLUENZA
     Dosage: DRUG REPORTED AS TAMIFLU CAPSULE
     Route: 048
     Dates: start: 20090121, end: 20090121
  2. KLARICID [Suspect]
     Indication: DRUG USE FOR UNKNOWN INDICATION
     Route: 048
     Dates: start: 20090120, end: 20090121
  3. TRANSAMIN [Suspect]
     Indication: DRUG USE FOR UNKNOWN INDICATION
     Route: 048
     Dates: start: 20090120, end: 20090121
  4. HUSCODE [Suspect]
     Indication: DRUG USE FOR UNKNOWN INDICATION
     Route: 048
     Dates: start: 20090120, end: 20090121
  5. TERNELIN [Concomitant]
     Route: 048
     Dates: start: 20050401
  6. DEPAS [Concomitant]
     Route: 048
     Dates: start: 20050401
  7. MICARDIS [Concomitant]
     Route: 048
     Dates: start: 20050401
  8. OMEPRAL [Concomitant]
     Route: 048
     Dates: start: 20050401
  9. CRESTOR [Concomitant]
     Route: 048
     Dates: start: 20081201
  10. MUCOSTA [Concomitant]
     Route: 048
  11. GASMOTIN [Concomitant]
     Route: 048

REACTIONS (3)
  - DIZZINESS [None]
  - FRACTURED SKULL DEPRESSED [None]
  - SYNCOPE [None]
